FAERS Safety Report 8559508-X (Version None)
Quarter: 2012Q2

REPORT INFORMATION
  Report Type: 
  Country: None (occurrence: None)
  Receive Date: 20120418
  Receipt Date: 20110412
  Transmission Date: 20120825
  Serious: Yes (Hospitalization)
  Sender: FDA-Public Use
  Company Number: PHHY2011US30631

PATIENT
  Age: 53 Year
  Sex: Male

DRUGS (3)
  1. DIOVAN HCT [Suspect]
     Dosage: 1 DF, BID
  2. PROCARDIA [Concomitant]
  3. ACETAMINOPHEN [Concomitant]

REACTIONS (1)
  - HYPERTENSION [None]
